FAERS Safety Report 8305607-7 (Version None)
Quarter: 2012Q2

REPORT INFORMATION
  Report Type: 
  Country: None (occurrence: None)
  Receive Date: 20120423
  Receipt Date: 20120418
  Transmission Date: 20120825
  Serious: Yes (Hospitalization)
  Sender: FDA-Public Use
  Company Number: PHHO2011IE019109

PATIENT
  Sex: Female
  Weight: 50.5 kg

DRUGS (12)
  1. AFINITOR [Suspect]
     Dosage: 2.5 MG, UNK
     Route: 048
     Dates: start: 20111121, end: 20111124
  2. LANSOPRAZOLE [Concomitant]
     Dosage: 30 MG, QD
     Route: 048
     Dates: start: 20110909
  3. SENNA [Concomitant]
     Indication: LAXATIVE SUPPORTIVE CARE
     Dosage: UNK
     Dates: start: 20110908
  4. COMPARATOR TRASTUZUMAB [Suspect]
     Dosage: 102 MG, UNK
     Dates: start: 20111202
  5. AFINITOR [Suspect]
     Indication: BREAST CANCER METASTATIC
     Dosage: 2.5 MG, UNK
     Route: 048
     Dates: start: 20110930, end: 20111111
  6. PACLITAXEL [Suspect]
     Dosage: 119 MG, UNK
     Dates: start: 20111209
  7. CALCIUM CARBONATE [Concomitant]
     Dosage: UNK
     Dates: start: 20110916
  8. ZANTAC [Concomitant]
     Indication: NAUSEA
     Dosage: 4 MG, TID
     Route: 048
     Dates: start: 20111021
  9. DEXAMETHASONE [Concomitant]
     Indication: NAUSEA
     Dosage: 4 MG, BID
     Route: 048
     Dates: start: 20110907
  10. COMPARATOR TRASTUZUMAB [Suspect]
     Indication: BREAST CANCER METASTATIC
     Dosage: 102 MG, UNK
     Dates: start: 20110930, end: 20111118
  11. PACLITAXEL [Suspect]
     Indication: BREAST CANCER METASTATIC
     Dosage: 119 MG, UNK
     Dates: start: 20110930, end: 20111104
  12. DICLOFENAC SODIUM [Suspect]
     Indication: PAIN
     Dosage: 175 MG, PRN
     Dates: start: 20111101, end: 20111125

REACTIONS (2)
  - PAIN [None]
  - COLITIS ISCHAEMIC [None]
